FAERS Safety Report 4552473-1 (Version None)
Quarter: 2005Q1

REPORT INFORMATION
  Report Type: 
  Country: None (occurrence: None)
  Receive Date: 20050114
  Receipt Date: 20041123
  Transmission Date: 20050727
  Serious: No
  Sender: FDA-Public Use
  Company Number: US-BRISTOL-MYERS SQUIBB COMPANY-12775334

PATIENT
  Age: 66 Year
  Sex: Male
  Weight: 100 kg

DRUGS (12)
  1. PLATINOL [Suspect]
     Indication: OESOPHAGEAL CANCER METASTATIC
     Route: 042
     Dates: start: 20041122, end: 20041122
  2. MANNITOL [Concomitant]
     Route: 042
     Dates: start: 20041122, end: 20041122
  3. NORMAL SALINE [Concomitant]
  4. ZOFRAN [Concomitant]
     Indication: PREMEDICATION
     Route: 042
     Dates: start: 20041122, end: 20041122
  5. NORVASC [Concomitant]
  6. LIPITOR [Concomitant]
  7. OXYCODONE HCL [Concomitant]
  8. NEXIUM [Concomitant]
  9. TYLENOL W/ CODEINE NO. 3 [Concomitant]
  10. HUMULIN 70/30 [Concomitant]
  11. DIOVAN [Concomitant]
  12. DEXAMETHASONE [Concomitant]
     Indication: PREMEDICATION
     Route: 042
     Dates: start: 20041122, end: 20041122

REACTIONS (1)
  - EXTRAVASATION [None]
